FAERS Safety Report 16128541 (Version 1)
Quarter: 2019Q1

REPORT INFORMATION
  Report Type: Spontaneous
  Country: NO (occurrence: NO)
  Receive Date: 20190328
  Receipt Date: 20190328
  Transmission Date: 20190418
  Serious: Yes (Death, Hospitalization, Other)
  Sender: FDA-Public Use
  Company Number: NO-BAYER-2019-054030

PATIENT
  Sex: Male

DRUGS (2)
  1. REGORAFENIB. [Suspect]
     Active Substance: REGORAFENIB
     Indication: COLORECTAL CANCER METASTATIC
     Dosage: UNK
  2. REGORAFENIB. [Suspect]
     Active Substance: REGORAFENIB
     Indication: METASTASES TO LIVER

REACTIONS (12)
  - Metastases to central nervous system [None]
  - Dry skin [None]
  - Headache [None]
  - Blister [None]
  - Vomiting [None]
  - Colorectal cancer metastatic [Fatal]
  - Pain in extremity [None]
  - Posterior reversible encephalopathy syndrome [None]
  - Thrombocytopenia [None]
  - Hemianopia homonymous [None]
  - Brain oedema [None]
  - Stomatitis [None]
